FAERS Safety Report 5141251-0 (Version None)
Quarter: 2006Q4

REPORT INFORMATION
  Report Type: 
  Country: None (occurrence: None)
  Receive Date: 20061101
  Receipt Date: 20061024
  Transmission Date: 20070319
  Serious: Yes (Other)
  Sender: FDA-Public Use
  Company Number: DE-JNJFOC-20061005630

PATIENT
  Age: 37 Year
  Sex: Male

DRUGS (2)
  1. REMICADE [Suspect]
     Route: 042
  2. REMICADE [Suspect]
     Indication: URTICARIA
     Dosage: NINE INFUSIONS
     Route: 042

REACTIONS (6)
  - DIARRHOEA [None]
  - DRUG EFFECT DECREASED [None]
  - HEADACHE [None]
  - MUCOSAL HAEMORRHAGE [None]
  - OFF LABEL USE [None]
  - WEIGHT DECREASED [None]
